FAERS Safety Report 5938728-4 (Version None)
Quarter: 2008Q4

REPORT INFORMATION
  Report Type: 
  Country: None (occurrence: None)
  Receive Date: 20081103
  Receipt Date: 20081023
  Transmission Date: 20090506
  Serious: Yes (Other)
  Sender: FDA-Public Use
  Company Number: FR-ASTRAZENECA-2008CG01561

PATIENT
  Age: 55 Year
  Sex: Male

DRUGS (4)
  1. CRESTOR [Suspect]
     Indication: DYSLIPIDAEMIA
     Route: 048
     Dates: start: 20070101, end: 20081022
  2. EFFEXOR [Concomitant]
     Indication: DEPRESSION
     Route: 048
  3. COAPROVEL [Concomitant]
     Route: 048
  4. KARDEGIC [Concomitant]
     Route: 048

REACTIONS (2)
  - MUSCLE FATIGUE [None]
  - MUSCLE TWITCHING [None]
